FAERS Safety Report 8682648 (Version 2)
Quarter: 2012Q4

REPORT INFORMATION
  Report Type: Report from Study
  Country: US (occurrence: US)
  Receive Date: 20120725
  Receipt Date: 20121010
  Transmission Date: 20130627
  Serious: Yes (Hospitalization, Other)
  Sender: FDA-Public Use
  Company Number: US-US-EMD SERONO, INC.-7148708

PATIENT
  Age: 47 None
  Sex: Female

DRUGS (3)
  1. REBIF [Suspect]
     Indication: PRODUCT USED FOR UNKNOWN INDICATION
     Route: 058
     Dates: start: 20090422, end: 20120619
  2. REBIF [Suspect]
     Dates: start: 20120713
  3. PROTONIX [Concomitant]
     Indication: PRODUCT USED FOR UNKNOWN INDICATION

REACTIONS (9)
  - Cystitis [Unknown]
  - Kidney infection [Unknown]
  - Thrombosis [Recovering/Resolving]
  - Pulmonary thrombosis [Recovering/Resolving]
  - Cardiac disorder [Recovered/Resolved]
  - Splenic embolism [Unknown]
  - Factor V Leiden mutation [Unknown]
  - Lip injury [Unknown]
  - Multiple sclerosis [Unknown]
